FAERS Safety Report 4975536-5 (Version None)
Quarter: 2006Q2

REPORT INFORMATION
  Report Type: 
  Country: None (occurrence: None)
  Receive Date: 20060410
  Receipt Date: 20060320
  Transmission Date: 20061013
  Serious: Yes (Other)
  Sender: FDA-Public Use
  Company Number: DE200603006965

PATIENT
  Age: 25 Year
  Sex: Female

DRUGS (6)
  1. ZYPREXA [Suspect]
     Indication: SCHIZOPHRENIA
     Dosage: SEE IMAGE
     Route: 048
     Dates: start: 20050611, end: 20050611
  2. ZYPREXA [Suspect]
     Indication: SCHIZOPHRENIA
     Dosage: SEE IMAGE
     Route: 048
     Dates: start: 20050612, end: 20050616
  3. ZYPREXA [Suspect]
     Indication: SCHIZOPHRENIA
     Dosage: SEE IMAGE
     Route: 048
     Dates: start: 20050617, end: 20050617
  4. ZYPREXA [Suspect]
     Indication: SCHIZOPHRENIA
     Dosage: SEE IMAGE
     Route: 048
     Dates: start: 20050618, end: 20050621
  5. LAUBEEL (LORAZEPAM) [Concomitant]
  6. ABILIFY [Concomitant]

REACTIONS (7)
  - BLOOD PRESSURE DECREASED [None]
  - DIZZINESS [None]
  - DRUG LEVEL INCREASED [None]
  - FALL [None]
  - FLUID INTAKE REDUCED [None]
  - ORAL INTAKE REDUCED [None]
  - TACHYCARDIA [None]
